FAERS Safety Report 5291937-2 (Version None)
Quarter: 2007Q2

REPORT INFORMATION
  Report Type: 
  Country: None (occurrence: None)
  Receive Date: 20070410
  Receipt Date: 20070407
  Transmission Date: 20071010
  Serious: Yes (Other)
  Sender: FDA-Public Use
  Company Number: AU-GENENTECH-236065

PATIENT
  Sex: Female

DRUGS (1)
  1. RAPTIVA [Suspect]
     Indication: PSORIASIS
     Dosage: 1 UNK, 1/WEEK
     Route: 058
     Dates: start: 20060711, end: 20070129

REACTIONS (1)
  - LUPUS-LIKE SYNDROME [None]
